FAERS Safety Report 4558159-1 (Version None)
Quarter: 2005Q1

REPORT INFORMATION
  Report Type: 
  Country: None (occurrence: None)
  Receive Date: 20050121
  Receipt Date: 20050117
  Transmission Date: 20050727
  Serious: Yes (Hospitalization)
  Sender: FDA-Public Use
  Company Number: PHEH2005US00968

PATIENT
  Age: 43 Year
  Sex: Female

DRUGS (1)
  1. CLOZARIL [Suspect]
     Dosage: 100 MG, BID
     Route: 048
     Dates: end: 20050117

REACTIONS (3)
  - CROHN'S DISEASE [None]
  - LEUKOPENIA [None]
  - NEUTROPENIA [None]
